FAERS Safety Report 5881573-9 (Version None)
Quarter: 2008Q3

REPORT INFORMATION
  Report Type: 
  Country: None (occurrence: None)
  Receive Date: 20080912
  Receipt Date: 20080702
  Transmission Date: 20090109
  Serious: No
  Sender: FDA-Public Use
  Company Number: US-ABBOTT-08P-163-0460828-00

PATIENT
  Sex: Female
  Weight: 52.21 kg

DRUGS (14)
  1. HUMIRA [Suspect]
     Indication: PSORIATIC ARTHROPATHY
     Route: 050
     Dates: start: 20080702
  2. HUMIRA [Suspect]
     Indication: PSORIASIS
  3. METHOTREXATE [Concomitant]
     Indication: PSORIATIC ARTHROPATHY
     Route: 050
     Dates: start: 20070101
  4. METHOTREXATE [Concomitant]
     Indication: PSORIASIS
  5. OXYBUTYNIN CHLORIDE [Concomitant]
     Indication: BLADDER DISORDER
     Route: 048
     Dates: start: 20010101
  6. SERTRALINE [Concomitant]
     Indication: ANXIETY
     Route: 048
     Dates: start: 20060101
  7. OMEPRAZOLE MAGNESIUM [Concomitant]
     Indication: STOMACH DISCOMFORT
     Route: 048
     Dates: start: 20060101
  8. OMEPRAZOLE MAGNESIUM [Concomitant]
     Indication: PROPHYLAXIS
  9. FOLIC ACID [Concomitant]
     Indication: VITAMIN SUPPLEMENTATION
     Route: 048
     Dates: start: 20070101
  10. HYDROCHLOROTHIAZIDE [Concomitant]
     Indication: BLOOD DISORDER
     Route: 048
     Dates: start: 20080201
  11. IBANDRONATE SODIUM [Concomitant]
     Indication: BONE DISORDER
     Route: 042
  12. SKIN OINTMENT-KANLOG SPRAY [Concomitant]
     Indication: SKIN DISORDER
     Route: 061
  13. DESONIDE [Concomitant]
     Indication: SKIN DISORDER
     Route: 061
  14. HALOBTASOL [Concomitant]
     Indication: SKIN DISORDER
     Route: 061

REACTIONS (1)
  - PROCEDURAL COMPLICATION [None]
